FAERS Safety Report 8891697 (Version 1)
Quarter: 2012Q4

REPORT INFORMATION
  Report Type: Spontaneous
  Country: US (occurrence: None)
  Receive Date: 20121031
  Receipt Date: 20121031
  Transmission Date: 20130627
  Serious: Yes (Hospitalization)
  Sender: FDA-Public Use
  Company Number: 2012ML000104

PATIENT
  Age: 62 Year
  Sex: Male

DRUGS (3)
  1. BUPRENORPHINE [Suspect]
     Indication: TREATMENT WITHDRAWAL
  2. BUPRENORPHINE [Suspect]
     Indication: TREATMENT WITHDRAWAL
  3. METHADONE [Concomitant]

REACTIONS (2)
  - Withdrawal syndrome [None]
  - Medication error [None]
